FAERS Safety Report 5884081-4 (Version None)
Quarter: 2008Q3

REPORT INFORMATION
  Report Type: 
  Country: None (occurrence: None)
  Receive Date: 20080911
  Receipt Date: 20080904
  Transmission Date: 20090109
  Serious: Yes (Hospitalization)
  Sender: FDA-Public Use
  Company Number: 08P-020-0472036-00

PATIENT
  Sex: Male

DRUGS (3)
  1. SYNAGIS [Suspect]
     Indication: DRUG USE FOR UNKNOWN INDICATION
     Dosage: SEE IMAGE
     Route: 030
     Dates: start: 20080425, end: 20080425
  2. SYNAGIS [Suspect]
     Indication: DRUG USE FOR UNKNOWN INDICATION
     Dosage: SEE IMAGE
     Route: 030
     Dates: start: 20080528, end: 20080528
  3. SYNAGIS [Suspect]
     Indication: DRUG USE FOR UNKNOWN INDICATION
     Dosage: SEE IMAGE
     Route: 030
     Dates: start: 20080601, end: 20080601

REACTIONS (2)
  - BRONCHIOLITIS [None]
  - PNEUMONIA [None]
